FAERS Safety Report 5254627-8 (Version None)
Quarter: 2007Q1

REPORT INFORMATION
  Report Type: 
  Country: None (occurrence: None)
  Receive Date: 20070302
  Receipt Date: 20070223
  Transmission Date: 20070707
  Serious: Yes (Hospitalization, Other)
  Sender: FDA-Public Use
  Company Number: US-PFIZER INC-2007014558

PATIENT
  Sex: Female
  Weight: 97 kg

DRUGS (7)
  1. GENOTROPIN [Suspect]
     Indication: HYPOPITUITARISM
     Route: 058
  2. GLUCOPHAGE [Concomitant]
     Route: 048
  3. LIPITOR [Concomitant]
     Route: 048
  4. SYNTHROID [Concomitant]
     Route: 048
  5. ELAVIL [Concomitant]
     Route: 048
  6. ASPIRIN [Concomitant]
     Route: 048
  7. ESTROGEL [Concomitant]
     Dosage: TEXT:0.06%
     Route: 061

REACTIONS (3)
  - ABDOMINAL PAIN [None]
  - CHOLELITHIASIS [None]
  - NAUSEA [None]
